FAERS Safety Report 14806897 (Version 1)
Quarter: 2018Q2

REPORT INFORMATION
  Report Type: Spontaneous
  Country: ZA (occurrence: ZA)
  Receive Date: 20180425
  Receipt Date: 20180425
  Transmission Date: 20180711
  Serious: Yes (Hospitalization, Other)
  Sender: FDA-Public Use
  Company Number: ZA-PFIZER INC-2018165480

PATIENT
  Age: 58 Year
  Sex: Female

DRUGS (4)
  1. STILPANE /01152401/ [Suspect]
     Active Substance: ACETAMINOPHEN\CAFFEINE\CODEINE PHOSPHATE\MEPROBAMATE
     Dosage: UNK
  2. BRAZEPAM [Suspect]
     Active Substance: BROMAZEPAM
     Dosage: 3 MG, UNK
  3. TREPILINE /00002201/ [Suspect]
     Active Substance: AMITRIPTYLINE
     Dosage: 10 MG, UNK
  4. ASPAVOR [Suspect]
     Active Substance: ATORVASTATIN
     Dosage: 10 MG, UNK

REACTIONS (1)
  - Ligament rupture [Unknown]
